FAERS Safety Report 22956143 (Version 3)
Quarter: 2024Q3

REPORT INFORMATION
  Report Type: Report from Study
  Country: US (occurrence: US)
  Receive Date: 20230919
  Receipt Date: 20240909
  Transmission Date: 20241017
  Serious: No
  Sender: NOVARTIS
  Company Number: US-002147023-NVSC2023US198530

PATIENT
  Sex: Female

DRUGS (2)
  1. KESIMPTA [Suspect]
     Active Substance: OFATUMUMAB
     Indication: Product used for unknown indication
     Dosage: 20 MG, QMO
     Route: 058
  2. KESIMPTA [Suspect]
     Active Substance: OFATUMUMAB
     Dosage: UNK
     Route: 065
     Dates: start: 20240823

REACTIONS (10)
  - Pain [Unknown]
  - Fatigue [Unknown]
  - Anger [Unknown]
  - Depressed mood [Unknown]
  - Central nervous system lesion [Unknown]
  - Blepharospasm [Unknown]
  - Gait disturbance [Unknown]
  - Dysarthria [Unknown]
  - Therapeutic response shortened [Unknown]
  - Injection site bruising [Unknown]
